FAERS Safety Report 9358715 (Version 2)
Quarter: 2013Q3

REPORT INFORMATION
  Report Type: Spontaneous
  Country: CH (occurrence: CH)
  Receive Date: 20130620
  Receipt Date: 20130708
  Transmission Date: 20140515
  Serious: Yes (Hospitalization)
  Sender: FDA-Public Use
  Company Number: CH-GLAXOSMITHKLINE-B0901064A

PATIENT
  Age: 50 Year
  Sex: Male

DRUGS (3)
  1. SERETIDE [Suspect]
     Indication: ASTHMA
     Route: 065
  2. VENTOLIN [Suspect]
     Indication: ASTHMA
     Route: 055
  3. SINGULAIR [Suspect]
     Indication: ASTHMA
     Route: 065

REACTIONS (2)
  - Asthma [Unknown]
  - Drug effect decreased [Unknown]
